FAERS Safety Report 21652305 (Version 1)
Quarter: 2022Q4

REPORT INFORMATION
  Report Type: Spontaneous
  Country: US (occurrence: None)
  Receive Date: 20221123
  Receipt Date: 20221123
  Transmission Date: 20230113
  Serious: Yes (Hospitalization)
  Sender: FDA-Public Use
  Company Number: None

PATIENT
  Age: 58 Year
  Sex: Female

DRUGS (2)
  1. CYCLOPHOSPHAMIDE [Suspect]
     Active Substance: CYCLOPHOSPHAMIDE
     Dosage: OTHER FREQUENCY : OTHER;?
     Route: 042
     Dates: end: 202211
  2. VELCADE [Concomitant]
     Active Substance: BORTEZOMIB

REACTIONS (2)
  - Nausea [None]
  - Kidney infection [None]

NARRATIVE: CASE EVENT DATE: 20221101
